FAERS Safety Report 6876193-3 (Version None)
Quarter: 2010Q3

REPORT INFORMATION
  Report Type: 
  Country: None (occurrence: None)
  Receive Date: 20100727
  Receipt Date: 20100708
  Transmission Date: 20110219
  Serious: Yes (Hospitalization)
  Sender: FDA-Public Use
  Company Number: A0866817A

PATIENT
  Age: 47 Year
  Sex: Male
  Weight: 122 kg

DRUGS (1)
  1. AVANDIA [Suspect]
     Dosage: 8MG PER DAY

REACTIONS (4)
  - CARDIAC FAILURE CONGESTIVE [None]
  - CORONARY ARTERY DISEASE [None]
  - DEPRESSION [None]
  - MYOCARDIAL INFARCTION [None]
